FAERS Safety Report 10025719 (Version 4)
Quarter: 2014Q3

REPORT INFORMATION
  Report Type: Spontaneous
  Country: US (occurrence: US)
  Receive Date: 20140320
  Receipt Date: 20140730
  Transmission Date: 20150326
  Serious: Yes (Death, Hospitalization, Other)
  Sender: FDA-Public Use
  Company Number: US-009507513-1403USA009222

PATIENT
  Sex: Male
  Weight: 124.72 kg

DRUGS (4)
  1. BYETTA [Suspect]
     Active Substance: EXENATIDE
     Indication: TYPE 2 DIABETES MELLITUS
     Dosage: 5 MG, QD
     Dates: start: 20080924, end: 200810
  2. JANUMET [Suspect]
     Active Substance: METFORMIN HYDROCHLORIDE\SITAGLIPTIN PHOSPHATE
     Indication: TYPE 2 DIABETES MELLITUS
     Dosage: 50 MG/500 MG, BID
     Route: 048
     Dates: start: 20070926, end: 200809
  3. JANUMET [Suspect]
     Active Substance: METFORMIN HYDROCHLORIDE\SITAGLIPTIN PHOSPHATE
     Dosage: 50 MG/500 MG, QD
     Route: 048
     Dates: start: 20080207, end: 20080221
  4. BYETTA [Suspect]
     Active Substance: EXENATIDE
     Dosage: 10 MG, QD
     Dates: start: 200810, end: 201104

REACTIONS (28)
  - Cholecystectomy [Unknown]
  - Metastases to lung [Unknown]
  - Deep vein thrombosis [Unknown]
  - Metastases to peritoneum [Unknown]
  - Lymphadenectomy [Unknown]
  - Asthenia [Unknown]
  - Postoperative ileus [Unknown]
  - Bile duct stent insertion [Unknown]
  - Umbilical hernia repair [Unknown]
  - Diabetic neuropathy [Unknown]
  - Metastases to gallbladder [Unknown]
  - Metastases to liver [Unknown]
  - Temperature intolerance [Unknown]
  - Anaemia [Unknown]
  - Pancreatic carcinoma metastatic [Fatal]
  - Pancreatectomy [Unknown]
  - Jaundice cholestatic [Unknown]
  - Cholecystitis chronic [Recovered/Resolved]
  - Umbilical hernia [Recovered/Resolved]
  - Rash [Unknown]
  - Metastases to lymph nodes [Unknown]
  - Metastases to large intestine [Unknown]
  - Gout [Unknown]
  - Nausea [Unknown]
  - Renal failure [Unknown]
  - Biliary dyskinesia [Recovered/Resolved]
  - Sleep disorder [Unknown]
  - Osteoarthritis [Unknown]

NARRATIVE: CASE EVENT DATE: 2011
